FAERS Safety Report 23147643 (Version 2)
Quarter: 2023Q4

REPORT INFORMATION
  Report Type: Report from Study
  Country: CA (occurrence: CA)
  Receive Date: 20231106
  Receipt Date: 20231116
  Transmission Date: 20240110
  Serious: Yes (Other)
  Sender: FDA-Public Use
  Company Number: CA-002147023-NVSC2023CA064660

PATIENT
  Age: 61 Year
  Sex: Female

DRUGS (1)
  1. FULVESTRANT [Suspect]
     Active Substance: FULVESTRANT
     Indication: Breast cancer
     Dosage: 250 MG, QMO (EVERY 28 DAYS)
     Route: 065
     Dates: start: 20230321

REACTIONS (6)
  - Bone cancer [Unknown]
  - Second primary malignancy [Unknown]
  - Metastases to spine [Unknown]
  - Cough [Unknown]
  - Nasopharyngitis [Unknown]
  - Somnolence [Unknown]
